FAERS Safety Report 23179212 (Version 1)
Quarter: 2023Q4

REPORT INFORMATION
  Report Type: Spontaneous
  Country: US (occurrence: US)
  Receive Date: 20231113
  Receipt Date: 20231113
  Transmission Date: 20240110
  Serious: No
  Sender: FDA-Public Use
  Company Number: US-PFIZER INC-202300351260

PATIENT
  Age: 75 Year
  Sex: Male

DRUGS (7)
  1. PAXLOVID [Suspect]
     Active Substance: NIRMATRELVIR\RITONAVIR
     Indication: COVID-19 treatment
     Dosage: UNK
     Dates: start: 20231006, end: 20231011
  2. TAMSULOSIN [Concomitant]
     Active Substance: TAMSULOSIN
     Dosage: UNK
  3. METOPROLOL [Concomitant]
     Active Substance: METOPROLOL
  4. NORVASC [Concomitant]
     Active Substance: AMLODIPINE BESYLATE
  5. CHOLECALCIFEROL [Concomitant]
     Active Substance: CHOLECALCIFEROL
  6. INDOMETHACIN [Concomitant]
     Active Substance: INDOMETHACIN
  7. MIRTAZAPINE [Concomitant]
     Active Substance: MIRTAZAPINE

REACTIONS (2)
  - COVID-19 [Unknown]
  - Disease recurrence [Unknown]

NARRATIVE: CASE EVENT DATE: 20231013
